FAERS Safety Report 24705150 (Version 1)
Quarter: 2024Q4

REPORT INFORMATION
  Report Type: Spontaneous
  Country: GB (occurrence: GB)
  Receive Date: 20241206
  Receipt Date: 20241206
  Transmission Date: 20250115
  Serious: Yes (Hospitalization, Other)
  Sender: TORRENT PHARMA INC.
  Company Number: None

PATIENT
  Sex: Male

DRUGS (2)
  1. LENALIDOMIDE [Suspect]
     Active Substance: LENALIDOMIDE
     Indication: Product used for unknown indication
     Dosage: UNKNOWN
     Route: 065
  2. SILTUXIMAB [Suspect]
     Active Substance: SILTUXIMAB
     Indication: Product used for unknown indication
     Dosage: FIRST DOSE, LYOPHILIZED POWDER
     Route: 065

REACTIONS (3)
  - Nephrolithiasis [Recovering/Resolving]
  - Lung disorder [Recovering/Resolving]
  - Cardiac disorder [Recovering/Resolving]

NARRATIVE: CASE EVENT DATE: 20240101
